FAERS Safety Report 18349984 (Version 1)
Quarter: 2020Q4

REPORT INFORMATION
  Report Type: Spontaneous
  Country: IT (occurrence: IT)
  Receive Date: 20201006
  Receipt Date: 20201006
  Transmission Date: 20210114
  Serious: Yes (Other)
  Sender: FDA-Public Use
  Company Number: IT-TEVA-2020-IT-1835302

PATIENT
  Age: 25 Year
  Sex: Female

DRUGS (15)
  1. PREDNISONE. [Suspect]
     Active Substance: PREDNISONE
     Indication: PRIMARY MEDIASTINAL LARGE B-CELL LYMPHOMA STAGE IV
     Dosage: PART OF R-MACOP-B REGIMEN; GIVEN CONTINUOUSLY
     Route: 065
     Dates: start: 201610, end: 201701
  2. THIOTEPA. [Suspect]
     Active Substance: THIOTEPA
     Indication: DIFFUSE LARGE B-CELL LYMPHOMA
     Dosage: PART OF CONDITIONING TREATMENT
     Route: 065
  3. VINCRISTINE [Suspect]
     Active Substance: VINCRISTINE
     Indication: PRIMARY MEDIASTINAL LARGE B-CELL LYMPHOMA STAGE IV
     Dosage: PART OF R-MACOP-B REGIMEN; ON CYCLES 2, 6, 10 AND 4, 8, 12
     Route: 065
     Dates: start: 2016, end: 201701
  4. THIOTEPA. [Suspect]
     Active Substance: THIOTEPA
     Indication: BONE MARROW CONDITIONING REGIMEN
     Dosage: PART OF MATRIX REGIMEN
     Route: 065
     Dates: start: 201704, end: 201708
  5. DOXORUBICIN [Suspect]
     Active Substance: DOXORUBICIN
     Indication: PRIMARY MEDIASTINAL LARGE B-CELL LYMPHOMA STAGE IV
     Dosage: PART OF R-MACOP-B REGIMEN; ON CYCLES 1, 3, 5, 7, 9, 11
     Route: 065
     Dates: start: 201610
  6. RITUXIMAB. [Suspect]
     Active Substance: RITUXIMAB
     Indication: PRIMARY MEDIASTINAL LARGE B-CELL LYMPHOMA STAGE IV
     Dosage: PART OF R-MACOP-B REGIMEN; RITUXIMAB BOOST DURING FOUR OF THE 12 CYCLES
     Route: 065
     Dates: start: 2016
  7. CYCLOPHOSPHAMIDE. [Suspect]
     Active Substance: CYCLOPHOSPHAMIDE
     Indication: PRIMARY MEDIASTINAL LARGE B-CELL LYMPHOMA
     Dosage: PART OF R-MACOP-B REGIMEN; ON CYCLES 1, 3, 5, 7, 9, 11
     Route: 065
     Dates: start: 201610
  8. METHOTREXATE. [Suspect]
     Active Substance: METHOTREXATE
     Indication: DIFFUSE LARGE B-CELL LYMPHOMA
     Dosage: PART OF MATRIX REGIMEN
     Route: 065
     Dates: start: 201704, end: 201708
  9. RITUXIMAB. [Suspect]
     Active Substance: RITUXIMAB
     Indication: DIFFUSE LARGE B-CELL LYMPHOMA
     Dosage: PART OF MATRIX REGIMEN
     Route: 065
     Dates: start: 201704, end: 201708
  10. CYTARABINE. [Suspect]
     Active Substance: CYTARABINE
     Indication: DIFFUSE LARGE B-CELL LYMPHOMA
     Dosage: PART OF MATRIX REGIMEN
     Route: 065
     Dates: start: 201704
  11. CYTARABINE. [Suspect]
     Active Substance: CYTARABINE
     Dosage: A SINGLE DOSE OF 2900MG OF CYTARABINE IN THE FOURTH CYCLE
     Route: 065
     Dates: start: 2017, end: 201708
  12. CARMUSTINE. [Suspect]
     Active Substance: CARMUSTINE
     Indication: BONE MARROW CONDITIONING REGIMEN
     Dosage: PART OF CONDITIONING TREATMENT
     Route: 065
  13. PLERIXAFOR [Concomitant]
     Active Substance: PLERIXAFOR
     Indication: HAEMATOPOIETIC STEM CELL MOBILISATION
     Route: 065
     Dates: start: 2017
  14. METHOTREXATE. [Suspect]
     Active Substance: METHOTREXATE
     Indication: PRIMARY MEDIASTINAL LARGE B-CELL LYMPHOMA STAGE IV
     Dosage: PART OF R-MACOP-B REGIMEN; ON CYCLES 2, 6, 10
     Route: 065
     Dates: start: 2016
  15. BLEOMYCIN [Suspect]
     Active Substance: BLEOMYCIN SULFATE
     Indication: PRIMARY MEDIASTINAL LARGE B-CELL LYMPHOMA STAGE IV
     Dosage: PART OF R-MACOP-B REGIMEN; ON CYCLES 4, 8, 12
     Route: 065
     Dates: start: 2016, end: 201701

REACTIONS (12)
  - Aspergillus infection [Unknown]
  - Thrombocytopenia [Unknown]
  - Nausea [Unknown]
  - Pyrexia [Recovered/Resolved]
  - Hypersensitivity [Unknown]
  - Herpes simplex reactivation [Unknown]
  - Stomatitis [Unknown]
  - Anaemia [Unknown]
  - Pharyngeal inflammation [Unknown]
  - Haematotoxicity [Unknown]
  - Dry eye [Unknown]
  - Neutropenia [Recovered/Resolved]

NARRATIVE: CASE EVENT DATE: 2017
